FAERS Safety Report 6273578-3 (Version None)
Quarter: 2009Q3

REPORT INFORMATION
  Report Type: 
  Country: None (occurrence: None)
  Receive Date: 20090720
  Receipt Date: 20090424
  Transmission Date: 20100115
  Serious: No
  Sender: FDA-Public Use
  Company Number: US-BAYER-200919244NA

PATIENT
  Age: 32 Year
  Sex: Female
  Weight: 62 kg

DRUGS (4)
  1. YAZ [Suspect]
     Indication: ENDOMETRIOSIS
     Route: 048
     Dates: start: 20070101
  2. FLORINEF [Concomitant]
  3. PREVACID [Concomitant]
  4. SINGULAIR [Concomitant]

REACTIONS (4)
  - IRRITABILITY [None]
  - MENSTRUATION DELAYED [None]
  - MOOD SWINGS [None]
  - NO ADVERSE EVENT [None]
